FAERS Safety Report 6688704-1 (Version None)
Quarter: 2010Q2

REPORT INFORMATION
  Report Type: 
  Country: None (occurrence: None)
  Receive Date: 20100420
  Receipt Date: 20100419
  Transmission Date: 20101027
  Serious: Yes (Other)
  Sender: FDA-Public Use
  Company Number: A0829275A

PATIENT
  Age: 50 Year
  Sex: Female
  Weight: 127.3 kg

DRUGS (1)
  1. AVANDIA [Suspect]
     Indication: DIABETES MELLITUS
     Route: 048
     Dates: start: 20080101

REACTIONS (10)
  - CARDIAC DISORDER [None]
  - CARDIOMEGALY [None]
  - DYSPNOEA [None]
  - FATIGUE [None]
  - FIBROMYALGIA [None]
  - LUNG DISORDER [None]
  - RHEUMATOID ARTHRITIS [None]
  - STRESS [None]
  - VISUAL IMPAIRMENT [None]
  - WEIGHT INCREASED [None]
